FAERS Safety Report 10252620 (Version 1)
Quarter: 2014Q2

REPORT INFORMATION
  Report Type: Spontaneous
  Country: IT (occurrence: IT)
  Receive Date: 20140623
  Receipt Date: 20140623
  Transmission Date: 20141212
  Serious: Yes (Other)
  Sender: FDA-Public Use
  Company Number: IT-PFIZER INC-2014168071

PATIENT
  Sex: Female

DRUGS (6)
  1. TRIATEC [Suspect]
     Indication: HYPERTENSION
     Dosage: 1 DF, DAILY
     Route: 048
     Dates: start: 20140101, end: 20140505
  2. LASIX [Suspect]
     Indication: HYPERTENSION
     Dosage: 25 MG TABLET (1 DOSAGE UNIT) DAILY
     Route: 048
     Dates: start: 20140101, end: 20140505
  3. SOTALOL [Concomitant]
     Dosage: UNK
  4. SIVASTIN [Concomitant]
     Dosage: UNK
  5. LANSOX [Concomitant]
     Dosage: UNK
  6. CARDIOASPIRIN [Concomitant]
     Dosage: UNK

REACTIONS (6)
  - Head injury [Recovering/Resolving]
  - Ecchymosis [Recovering/Resolving]
  - Retrograde amnesia [Recovering/Resolving]
  - Orthostatic hypotension [Recovering/Resolving]
  - Loss of consciousness [Recovering/Resolving]
  - Fall [Recovering/Resolving]
